FAERS Safety Report 10529685 (Version 2)
Quarter: 2015Q4

REPORT INFORMATION
  Report Type: Report from Study
  Country: US (occurrence: US)
  Receive Date: 20141021
  Receipt Date: 20151119
  Transmission Date: 20160304
  Serious: Yes (Hospitalization, Other)
  Sender: FDA-Public Use
  Company Number: US-BRISTOL-MYERS SQUIBB COMPANY-21497920

PATIENT
  Age: 47 Year
  Sex: Male
  Weight: 90 kg

DRUGS (3)
  1. MAGIC MOUTHWASH [Concomitant]
     Active Substance: DIPHENHYDRAMINE HYDROCHLORIDE\LIDOCAINE HYDROCHLORIDE\NYSTATIN
     Indication: PRODUCT USED FOR UNKNOWN INDICATION
     Route: 065
  2. DIFLUCAN [Concomitant]
     Active Substance: FLUCONAZOLE
     Indication: PRODUCT USED FOR UNKNOWN INDICATION
     Route: 065
  3. IPILIMUMAB [Suspect]
     Active Substance: IPILIMUMAB
     Indication: MALIGNANT MELANOMA
     Dosage: 10 MG/KG, Q3WK
     Route: 042
     Dates: start: 20140327, end: 20140904

REACTIONS (4)
  - Anaemia [Recovered/Resolved]
  - Lymphocyte count increased [Recovered/Resolved]
  - Hypophosphataemia [Recovered/Resolved]
  - Stomatitis [Not Recovered/Not Resolved]

NARRATIVE: CASE EVENT DATE: 20141009
